FAERS Safety Report 8583774-8 (Version None)
Quarter: 2012Q3

REPORT INFORMATION
  Report Type: 
  Country: None (occurrence: None)
  Receive Date: 20120810
  Receipt Date: 20120727
  Transmission Date: 20120928
  Serious: Yes (Other)
  Sender: FDA-Public Use
  Company Number: JP-MERCK-1208JPN002938

PATIENT

DRUGS (13)
  1. MUCODYNE [Concomitant]
     Indication: ASTHMA
     Dosage: UNK
     Route: 048
  2. DEPAKENE [Concomitant]
     Indication: EPILEPSY
     Dosage: UNK
     Route: 048
  3. FAMOTIDINE [Suspect]
     Indication: GASTRIC HAEMORRHAGE
     Dosage: 10 MG, BID
     Route: 048
     Dates: start: 20120405
  4. DANTRIUM [Suspect]
     Dosage: 125 MG, UNK
     Route: 048
     Dates: start: 20120704
  5. DANTRIUM [Suspect]
     Dosage: 125 MG, UNK
     Route: 048
     Dates: end: 20120628
  6. DANTRIUM [Suspect]
     Dosage: 100 MG, UNK
     Route: 048
     Dates: start: 20120629, end: 20120703
  7. BERACHIN [Concomitant]
     Indication: ASTHMA
     Dosage: UNK
     Route: 048
  8. ENTERONON R [Concomitant]
     Indication: DRUG THERAPY
     Dosage: UNK
  9. DANTRIUM [Suspect]
     Indication: MUSCLE TIGHTNESS
     Dosage: 25 MG, TID
     Route: 048
     Dates: start: 20120329, end: 20120510
  10. RIZABEN [Concomitant]
     Indication: ASTHMA
     Dosage: UNK
     Route: 048
  11. LAXOBERON [Concomitant]
     Indication: CONSTIPATION
     Dosage: UNK
     Route: 048
  12. DANTRIUM [Suspect]
     Dosage: 100 MG, UNK
     Route: 048
     Dates: start: 20120511
  13. CLARITHROMYCIN [Concomitant]
     Indication: DRUG THERAPY
     Dosage: UNK
     Route: 048

REACTIONS (3)
  - VOMITING [None]
  - OFF LABEL USE [None]
  - GASTROINTESTINAL HAEMORRHAGE [None]
